FAERS Safety Report 6546487-X (Version None)
Quarter: 2010Q1

REPORT INFORMATION
  Report Type: 
  Country: None (occurrence: None)
  Receive Date: 20100122
  Receipt Date: 20100120
  Transmission Date: 20100710
  Serious: Yes (Life-Threatening, Hospitalization)
  Sender: FDA-Public Use
  Company Number: PHHO2009US16369

PATIENT
  Sex: Female
  Weight: 82.5 kg

DRUGS (4)
  1. RAD001 [Suspect]
     Indication: CARCINOID TUMOUR
     Dosage: 10 MG, DAILY
     Route: 048
     Dates: start: 20070430, end: 20091231
  2. SANDOSTATIN [Suspect]
     Indication: CARCINOID TUMOUR
     Dosage: 35 MG, UNK
     Route: 030
     Dates: start: 20070430, end: 20091231
  3. PLACEBO COMP-PLA+ [Suspect]
     Indication: CARCINOID TUMOUR
     Dosage: DOUBLE BLIND
     Route: 048
     Dates: start: 20070430, end: 20091213
  4. PREDNISONE [Concomitant]
     Dosage: UNK
     Dates: start: 20091231

REACTIONS (6)
  - ACUTE LEUKAEMIA [None]
  - BACILLUS INFECTION [None]
  - FATIGUE [None]
  - LOBAR PNEUMONIA [None]
  - NEUTROPENIA [None]
  - WHITE BLOOD CELL COUNT INCREASED [None]
